FAERS Safety Report 6795162-5 (Version None)
Quarter: 2010Q2

REPORT INFORMATION
  Report Type: 
  Country: None (occurrence: None)
  Receive Date: 20100625
  Receipt Date: 20100625
  Transmission Date: 20101027
  Serious: Yes (Life-Threatening)
  Sender: FDA-Public Use
  Company Number: PHHO2008DE14260

PATIENT
  Sex: Male
  Weight: 64.8 kg

DRUGS (1)
  1. AFINITOR [Suspect]
     Indication: PANCREATIC NEUROENDOCRINE TUMOUR
     Dosage: 10 MG DAILY
     Route: 048
     Dates: start: 20080610, end: 20081127

REACTIONS (3)
  - DYSPNOEA [None]
  - SPEECH DISORDER [None]
  - TONGUE OEDEMA [None]
